FAERS Safety Report 8301994-4 (Version None)
Quarter: 2012Q2

REPORT INFORMATION
  Report Type: 
  Country: None (occurrence: None)
  Receive Date: 20120420
  Receipt Date: 20120418
  Transmission Date: 20120825
  Serious: Yes (Life-Threatening)
  Sender: FDA-Public Use
  Company Number: PHEH2011US03680

PATIENT
  Sex: Female
  Weight: 119.27 kg

DRUGS (16)
  1. BYETTA [Concomitant]
     Dosage: 10 UG, BID
  2. TOPAMAX [Concomitant]
     Dosage: 100 MG, QD
  3. WELLBUTRIN XL [Concomitant]
     Dosage: 2 DF, BID
  4. LISINOPRIL [Concomitant]
     Dosage: 5 MG, QD
  5. GILENYA [Suspect]
     Indication: RELAPSING-REMITTING MULTIPLE SCLEROSIS
     Dosage: 0.5 MG, QD
     Route: 048
     Dates: start: 20110614, end: 20110614
  6. BENADRYL [Concomitant]
     Dosage: 2 DF, Q6H PRN
     Route: 048
  7. OMEPRAZOLE [Concomitant]
     Dosage: 10 MG, BID
  8. VALIUM [Concomitant]
     Dosage: 5 MG, QHS PRN
     Route: 048
  9. CYMBALTA [Concomitant]
     Dosage: 60 MG, QD
  10. METFORMIN HCL [Concomitant]
     Dosage: 2 DF, BID
  11. HYDROXYZINE HYDROCHLORIDE [Concomitant]
     Indication: PRURITUS
     Dosage: 25 MG, Q8H
     Route: 048
  12. METHYLPHENIDATE [Concomitant]
     Dosage: 10 MG, BID
     Route: 048
  13. IMITREX [Concomitant]
     Dosage: 100 MG, PRN
  14. INDOMETHACIN [Concomitant]
     Indication: HEADACHE
     Dosage: 50 MG, Q8H PRN
     Route: 048
  15. BACLOFEN [Concomitant]
     Dosage: 2 DF, QHS AND 1 PRN
  16. EPIPEN [Concomitant]
     Indication: HYPERSENSITIVITY
     Dosage: 0.3 MG, UNK

REACTIONS (5)
  - PRURITUS [None]
  - HYPOAESTHESIA ORAL [None]
  - PARAESTHESIA ORAL [None]
  - URTICARIA [None]
  - RASH [None]
